FAERS Safety Report 18108800 (Version 1)
Quarter: 2020Q3

REPORT INFORMATION
  Report Type: Spontaneous
  Country: US (occurrence: US)
  Receive Date: 20200804
  Receipt Date: 20200804
  Transmission Date: 20201103
  Serious: No
  Sender: FDA-Public Use
  Company Number: US-TEVA-2020-US-1811133

PATIENT
  Sex: Female

DRUGS (2)
  1. TRAMADOL. [Suspect]
     Active Substance: TRAMADOL
     Dosage: 8 DOSAGE FORMS DAILY; DOSE: 2 TABLETS EVERY 6 HOURS
     Route: 065
  2. GABAPENTIN. [Suspect]
     Active Substance: GABAPENTIN
     Dosage: 300 MILLIGRAM DAILY; DOSE: 1 CAPSULE AT BEDTIME AS NEEDED
     Route: 065

REACTIONS (1)
  - Somnolence [Unknown]
